FAERS Safety Report 8269132-4 (Version None)
Quarter: 2012Q2

REPORT INFORMATION
  Report Type: 
  Country: None (occurrence: None)
  Receive Date: 20120409
  Receipt Date: 20120330
  Transmission Date: 20120825
  Serious: Yes (Life-Threatening, Other)
  Sender: FDA-Public Use
  Company Number: JP-ASTRAZENECA-2012SE02918

PATIENT
  Age: 21018 Day
  Sex: Female

DRUGS (29)
  1. ACYCLOVIR [Suspect]
     Dates: start: 20111119, end: 20111201
  2. CATABON [Concomitant]
     Dates: start: 20111201
  3. DIAZEPAM [Concomitant]
     Dates: start: 20111201
  4. MYCOPHENOLATE MOFETIL (CELLCEPT) [Concomitant]
     Route: 048
     Dates: start: 20111115, end: 20111201
  5. VANCOMYCIN [Concomitant]
     Dates: start: 20111118, end: 20111130
  6. PHENYTOIN SODIUM CAP [Concomitant]
     Route: 042
     Dates: start: 20111201
  7. ALBUMIN (HUMAN) [Concomitant]
     Route: 042
     Dates: start: 20111202, end: 20111202
  8. ZOLPIDEM [Concomitant]
     Route: 048
     Dates: end: 20111130
  9. ROHYPNOL [Concomitant]
     Route: 048
     Dates: end: 20111130
  10. FUNGUARD [Concomitant]
     Dates: start: 20111201
  11. BUPRENORPHINE HCL [Concomitant]
     Dates: start: 20111201
  12. MAGNESOL [Concomitant]
     Route: 042
     Dates: start: 20111201, end: 20111201
  13. MEROPENEM [Suspect]
     Indication: FEBRILE NEUTROPENIA
     Route: 042
     Dates: start: 20111116, end: 20111202
  14. ZOVIRAX [Concomitant]
     Route: 048
     Dates: end: 20111118
  15. DIFLUCAN [Concomitant]
     Route: 048
     Dates: end: 20111118
  16. PRODIF [Concomitant]
     Route: 042
     Dates: start: 20111119, end: 20111130
  17. OMEPRAZOLE [Concomitant]
     Route: 042
     Dates: start: 20111121
  18. LASIX [Concomitant]
     Dates: start: 20111121, end: 20111201
  19. ADRENALIN IN OIL INJ [Concomitant]
     Dates: start: 20111201, end: 20111201
  20. MIDAZOLAM HCL [Concomitant]
     Dates: start: 20111201
  21. SODIUM BICARBONATE [Concomitant]
     Route: 042
     Dates: start: 20111201, end: 20111201
  22. PROGRAF [Concomitant]
     Dates: end: 20111201
  23. NEUTROGIN [Concomitant]
  24. URSO 250 [Concomitant]
     Route: 048
     Dates: end: 20111118
  25. PREDNISOLONE [Concomitant]
     Dates: start: 20111129, end: 20111130
  26. TPN [Concomitant]
  27. SOLU-MEDROL [Concomitant]
     Route: 042
     Dates: start: 20111201
  28. MUSCURATE [Concomitant]
     Route: 042
     Dates: start: 20111201, end: 20111202
  29. RABEPRAZOLE SODIUM [Concomitant]
     Route: 048
     Dates: end: 20111118

REACTIONS (7)
  - CONVULSION [None]
  - BLOOD LACTATE DEHYDROGENASE INCREASED [None]
  - ALANINE AMINOTRANSFERASE INCREASED [None]
  - ASPARTATE AMINOTRANSFERASE INCREASED [None]
  - RENAL FAILURE [None]
  - CARDIO-RESPIRATORY ARREST [None]
  - SHOCK [None]
